FAERS Safety Report 7827003-9 (Version None)
Quarter: 2011Q4

REPORT INFORMATION
  Report Type: 
  Country: None (occurrence: None)
  Receive Date: 20111020
  Receipt Date: 20111013
  Transmission Date: 20120403
  Serious: Yes (Disabling, Other)
  Sender: FDA-Public Use
  Company Number: GB-UCBSA-043435

PATIENT
  Age: 58 Year
  Sex: Female

DRUGS (6)
  1. CIMZIA [Suspect]
     Route: 058
     Dates: start: 20110901
  2. FOLIC ACID [Concomitant]
  3. ACETAMINOPHEN [Concomitant]
  4. LEVETIRACETAM [Concomitant]
  5. METHOTREXATE [Concomitant]
  6. TOLTERODINE TARTRATE [Concomitant]

REACTIONS (1)
  - DEAFNESS [None]
